FAERS Safety Report 20316665 (Version 4)
Quarter: 2023Q1

REPORT INFORMATION
  Report Type: Report from Study
  Country: US (occurrence: US)
  Receive Date: 20220110
  Receipt Date: 20230321
  Transmission Date: 20230418
  Serious: No
  Sender: FDA-Public Use
  Company Number: US-NOVARTISTESTPH-NVSC2022US003213

PATIENT
  Sex: Female

DRUGS (2)
  1. ENTRESTO [Suspect]
     Active Substance: SACUBITRIL\VALSARTAN
     Indication: Cardiac failure
     Dosage: 1 DOSAGE FORM, BID
     Route: 048
     Dates: start: 202104
  2. ENTRESTO [Suspect]
     Active Substance: SACUBITRIL\VALSARTAN
     Indication: Cardiac failure congestive
     Dosage: 1.5 DOSAGE FORM, BID (HALF OF TABLET OF IN THE MORNING AND WHOLE TABLET AT NIGHT)
     Route: 048
     Dates: start: 202202

REACTIONS (5)
  - Cystitis [Unknown]
  - Weight decreased [Unknown]
  - Decreased appetite [Unknown]
  - Hypotension [Unknown]
  - Wrong technique in product usage process [Unknown]
